FAERS Safety Report 16721834 (Version 1)
Quarter: 2019Q3

REPORT INFORMATION
  Report Type: Spontaneous
  Country: DE (occurrence: DE)
  Receive Date: 20190820
  Receipt Date: 20190820
  Transmission Date: 20191005
  Serious: Yes (Hospitalization)
  Sender: FDA-Public Use
  Company Number: DE-TEVA-2019-DE-1093158

PATIENT
  Age: 92 Year
  Sex: Male

DRUGS (1)
  1. RISPERIDON [Suspect]
     Active Substance: RISPERIDONE
     Dosage: 0.25 MG, 1-0-2-0
     Route: 065

REACTIONS (2)
  - Accidental overdose [Unknown]
  - Sopor [Unknown]

NARRATIVE: CASE EVENT DATE: 20170308
